FAERS Safety Report 5362887-8 (Version None)
Quarter: 2007Q2

REPORT INFORMATION
  Report Type: 
  Country: None (occurrence: None)
  Receive Date: 20070530
  Receipt Date: 20070328
  Transmission Date: 20071010
  Serious: No
  Sender: FDA-Public Use
  Company Number: 2007PV032592

PATIENT
  Sex: Male

DRUGS (5)
  1. BYETTA [Suspect]
     Indication: DIABETES MELLITUS NON-INSULIN-DEPENDENT
     Dosage: 10;5 MCG;BID;SC
     Route: 058
     Dates: start: 20070201, end: 20070301
  2. BYETTA [Suspect]
     Indication: DIABETES MELLITUS NON-INSULIN-DEPENDENT
     Dosage: 10;5 MCG;BID;SC
     Route: 058
     Dates: start: 20070301
  3. GLUCOPHAGE [Concomitant]
  4. ACTOS [Concomitant]
  5. GLYBURIDE [Concomitant]

REACTIONS (5)
  - BLOOD GLUCOSE DECREASED [None]
  - BLOOD GLUCOSE INCREASED [None]
  - INJECTION SITE PAIN [None]
  - NAUSEA [None]
  - POOR QUALITY SLEEP [None]
